FAERS Safety Report 7827421-9 (Version None)
Quarter: 2011Q4

REPORT INFORMATION
  Report Type: 
  Country: None (occurrence: None)
  Receive Date: 20111020
  Receipt Date: 20111014
  Transmission Date: 20120403
  Serious: Yes (Other)
  Sender: FDA-Public Use
  Company Number: PR-AMGEN-USASP2011053406

PATIENT
  Age: 22 Month
  Sex: Male

DRUGS (1)
  1. NEUPOGEN [Suspect]
     Indication: NEUTROPENIA
     Dosage: 300 MUG, ONE TIME DOSE
     Dates: start: 20110601, end: 20111014

REACTIONS (4)
  - NEUTROPHIL COUNT ABNORMAL [None]
  - WHITE BLOOD CELL COUNT INCREASED [None]
  - ACCIDENTAL OVERDOSE [None]
  - PYREXIA [None]
